FAERS Safety Report 20073322 (Version 1)
Quarter: 2021Q4

REPORT INFORMATION
  Report Type: Spontaneous
  Country: TH (occurrence: TH)
  Receive Date: 20211116
  Receipt Date: 20211116
  Transmission Date: 20220303
  Serious: Yes (Other)
  Sender: FDA-Public Use
  Company Number: TH-NOVARTISPH-NVSC2021TH254531

PATIENT
  Age: 57 Year
  Sex: Female

DRUGS (4)
  1. BROLUCIZUMAB [Suspect]
     Active Substance: BROLUCIZUMAB
     Indication: Age-related macular degeneration
     Dosage: UNK
     Route: 031
     Dates: start: 20210619
  2. BROLUCIZUMAB [Suspect]
     Active Substance: BROLUCIZUMAB
     Dosage: UNK
     Route: 031
     Dates: start: 20210718
  3. BROLUCIZUMAB [Suspect]
     Active Substance: BROLUCIZUMAB
     Dosage: UNK
     Route: 031
     Dates: start: 20210815
  4. LASIX [Concomitant]
     Active Substance: FUROSEMIDE
     Indication: Myopia
     Dosage: UNK
     Route: 065

REACTIONS (3)
  - Retinal thickening [Unknown]
  - Blindness unilateral [Unknown]
  - Vision blurred [Unknown]
